FAERS Safety Report 11937758 (Version 1)
Quarter: 2016Q1

REPORT INFORMATION
  Report Type: Spontaneous
  Country: US (occurrence: None)
  Receive Date: 20160120
  Receipt Date: 20160120
  Transmission Date: 20160526
  Serious: Yes (Other)
  Sender: FDA-Public Use
  Company Number: None

PATIENT
  Age: 64 Year
  Sex: Female
  Weight: 76.2 kg

DRUGS (2)
  1. SANCUSO [Suspect]
     Active Substance: GRANISETRON
     Indication: NAUSEA
     Dosage: 1 PATCH APPLIED 1 TIME, RE  TOPICAL
     Dates: start: 20160112, end: 20160112
  2. SANCUSO [Suspect]
     Active Substance: GRANISETRON
     Indication: VOMITING
     Dosage: 1 PATCH APPLIED 1 TIME, RE  TOPICAL
     Dates: start: 20160112, end: 20160112

REACTIONS (3)
  - Device leakage [None]
  - Application site rash [None]
  - Application site urticaria [None]

NARRATIVE: CASE EVENT DATE: 20160118
